FAERS Safety Report 7276663 (Version 6)
Quarter: 2013Q4

REPORT INFORMATION
  Report Type: Spontaneous
  Country: US (occurrence: US)
  Receive Date: 20100212
  Receipt Date: 20131204
  Transmission Date: 20140711
  Serious: Yes (Hospitalization, Other)
  Sender: FDA-Public Use
  Company Number: US-BAYER-201013228NA

PATIENT
  Age: 39 Year
  Sex: Female
  Weight: 70.91 kg

DRUGS (5)
  1. YAZ [Suspect]
  2. OCELLA [Suspect]
  3. LO/OVRAL [Concomitant]
     Indication: PRODUCT USED FOR UNKNOWN INDICATION
     Dosage: UNK
     Dates: start: 20030610, end: 200406
  4. MACROBID [Concomitant]
     Indication: PRODUCT USED FOR UNKNOWN INDICATION
     Route: 048
  5. VICODIN [Concomitant]
     Indication: PAIN
     Dosage: UNK
     Dates: start: 20040423

REACTIONS (3)
  - Cholelithiasis [Unknown]
  - Biliary colic [Unknown]
  - Pain [Unknown]
